FAERS Safety Report 7893756-7 (Version None)
Quarter: 2011Q4

REPORT INFORMATION
  Report Type: 
  Country: None (occurrence: None)
  Receive Date: 20111104
  Receipt Date: 20111102
  Transmission Date: 20120403
  Serious: Yes (Death, Other)
  Sender: FDA-Public Use
  Company Number: PHHY2011DK96773

PATIENT
  Sex: Female
  Weight: 54 kg

DRUGS (2)
  1. LEVONORGESTREL AND ETHINYL ESTRADIOL [Suspect]
     Indication: ORAL CONTRACEPTION
     Dosage: UNK
     Route: 048
     Dates: start: 20110801
  2. PRIMCILLIN [Concomitant]
     Indication: LUNG INFECTION
     Dosage: 800 MG, TID
     Route: 048
     Dates: start: 20111020

REACTIONS (5)
  - INFECTION [None]
  - PNEUMONIA [None]
  - MALAISE [None]
  - PULMONARY EMBOLISM [None]
  - PYREXIA [None]
